FAERS Safety Report 9752720 (Version 1)
Quarter: 2013Q4

REPORT INFORMATION
  Report Type: Spontaneous
  Country: US (occurrence: None)
  Receive Date: 20131212
  Receipt Date: 20131212
  Transmission Date: 20140711
  Serious: Yes (Other)
  Sender: FDA-Public Use
  Company Number: None

PATIENT
  Sex: 0

DRUGS (1)
  1. LIDODERM PATCH [Suspect]
     Indication: BACK PAIN
     Route: 062

REACTIONS (2)
  - Product adhesion issue [None]
  - Blister [None]
